FAERS Safety Report 5094257-4 (Version None)
Quarter: 2006Q3

REPORT INFORMATION
  Report Type: 
  Country: None (occurrence: None)
  Receive Date: 20060831
  Receipt Date: 20060711
  Transmission Date: 20061208
  Serious: Yes (Other)
  Sender: FDA-Public Use
  Company Number: IE-GLAXOSMITHKLINE-B0430960A

PATIENT
  Age: 61 Year
  Sex: Female

DRUGS (2)
  1. SEROXAT [Suspect]
     Indication: DEPRESSION
     Dosage: 20MG PER DAY
     Route: 048
     Dates: start: 20040101, end: 20060629
  2. ELTROXIN [Concomitant]
     Dosage: 125UG PER DAY

REACTIONS (5)
  - ASTHENOPIA [None]
  - GLAUCOMA [None]
  - INTRAOCULAR PRESSURE INCREASED [None]
  - PHOTOSENSITIVITY REACTION [None]
  - VISION BLURRED [None]
